FAERS Safety Report 7914479-1 (Version None)
Quarter: 2011Q4

REPORT INFORMATION
  Report Type: 
  Country: None (occurrence: None)
  Receive Date: 20111115
  Receipt Date: 20111104
  Transmission Date: 20120403
  Serious: Yes (Death, Hospitalization, Other)
  Sender: FDA-Public Use
  Company Number: JP-JNJFOC-20110905173

PATIENT
  Sex: Male

DRUGS (19)
  1. PREDNISOLONE [Suspect]
     Route: 048
     Dates: start: 20110615, end: 20110628
  2. PREDNISOLONE [Suspect]
     Route: 048
     Dates: start: 20110629, end: 20110705
  3. CARVEDILOL [Concomitant]
     Indication: HYPERTENSION
     Route: 048
  4. PREDNISOLONE [Suspect]
     Route: 048
     Dates: start: 20110720, end: 20110810
  5. PLAVIX [Concomitant]
     Indication: MYOCARDIAL INFARCTION
     Route: 048
     Dates: start: 20110501
  6. ALFAROL [Concomitant]
     Indication: PROPHYLAXIS
     Dosage: DOSE: 1RG
     Route: 048
     Dates: start: 20110615
  7. REMICADE [Suspect]
     Route: 042
     Dates: start: 20110811
  8. PREDNISOLONE [Suspect]
     Route: 048
     Dates: start: 20110501
  9. PENTASA [Concomitant]
     Indication: COLITIS ULCERATIVE
     Route: 048
  10. REMICADE [Suspect]
     Route: 042
     Dates: start: 20110714
  11. LANSOPRAZOLE [Concomitant]
     Indication: PROPHYLAXIS
     Route: 048
     Dates: start: 20110615
  12. ASPIRIN [Concomitant]
     Indication: MYOCARDIAL INFARCTION
     Route: 048
     Dates: start: 20110501
  13. CRESTOR [Concomitant]
     Indication: HYPERLIPIDAEMIA
     Route: 048
  14. PREDNISOLONE [Suspect]
     Indication: COLITIS ULCERATIVE
     Route: 048
     Dates: start: 20110713, end: 20110719
  15. PREDNISOLONE [Suspect]
     Route: 048
     Dates: start: 20110811, end: 20110826
  16. PERINDOPRIL ERBUMINE [Concomitant]
     Indication: HYPERTENSION
     Route: 048
  17. REMICADE [Suspect]
     Indication: COLITIS ULCERATIVE
     Route: 042
     Dates: start: 20110630
  18. MESALAMINE [Suspect]
     Indication: PRODUCT USED FOR UNKNOWN INDICATION
     Route: 048
     Dates: end: 20110826
  19. PREDNISOLONE [Suspect]
     Route: 048
     Dates: start: 20110706, end: 20110712

REACTIONS (6)
  - PYREXIA [None]
  - PRODUCTIVE COUGH [None]
  - PO2 DECREASED [None]
  - CHEST X-RAY ABNORMAL [None]
  - PNEUMONIA FUNGAL [None]
  - INTERSTITIAL LUNG DISEASE [None]
